FAERS Safety Report 6244334-7 (Version None)
Quarter: 2009Q2

REPORT INFORMATION
  Report Type: 
  Country: None (occurrence: None)
  Receive Date: 20090625
  Receipt Date: 20090615
  Transmission Date: 20091009
  Serious: Yes (Other)
  Sender: FDA-Public Use
  Company Number: GB-ROCHE-638696

PATIENT
  Sex: Male

DRUGS (1)
  1. CELLCEPT [Suspect]
     Indication: GLOMERULONEPHRITIS MEMBRANOUS
     Route: 065

REACTIONS (2)
  - HYPOGONADISM [None]
  - OSTEOPOROSIS [None]
